FAERS Safety Report 6190796-3 (Version None)
Quarter: 2009Q2

REPORT INFORMATION
  Report Type: 
  Country: None (occurrence: None)
  Receive Date: 20090513
  Receipt Date: 20090513
  Transmission Date: 20091009
  Serious: Yes (Other)
  Sender: FDA-Public Use
  Company Number: None

PATIENT
  Sex: Female
  Weight: 67.6 kg

DRUGS (5)
  1. VINORELBINE [Suspect]
     Indication: BREAST CANCER METASTATIC
     Dosage: 25 MG/M2 WEEKLYX3 WEEKS/MON IV
     Route: 042
     Dates: start: 20090317, end: 20090428
  2. SORAFENIB 200MG BAYER [Suspect]
     Dosage: SORAFENIB 200MG DAILY PO
     Route: 048
  3. LORSARTAN [Concomitant]
  4. ATENOLOL [Concomitant]
  5. CARTIA XT [Concomitant]

REACTIONS (7)
  - ACTIVATED PARTIAL THROMBOPLASTIN TIME PROLONGED [None]
  - BLOOD PRESSURE INCREASED [None]
  - CONTUSION [None]
  - DRUG INTERACTION [None]
  - PAIN [None]
  - PROTHROMBIN TIME PROLONGED [None]
  - SWELLING [None]
